FAERS Safety Report 7012500-9 (Version None)
Quarter: 2010Q3

REPORT INFORMATION
  Report Type: 
  Country: None (occurrence: None)
  Receive Date: 20100923
  Receipt Date: 20100923
  Transmission Date: 20110219
  Serious: No
  Sender: FDA-Public Use
  Company Number: None

PATIENT
  Sex: Female
  Weight: 68.4932 kg

DRUGS (1)
  1. PLAVIX [Suspect]
     Indication: PERIPHERAL ARTERIAL OCCLUSIVE DISEASE
     Dates: start: 20090601, end: 20100601

REACTIONS (6)
  - CONTUSION [None]
  - DIARRHOEA [None]
  - ERYTHEMA [None]
  - FAECES DISCOLOURED [None]
  - PRURITUS [None]
  - RASH [None]
